FAERS Safety Report 22915802 (Version 3)
Quarter: 2024Q1

REPORT INFORMATION
  Report Type: Spontaneous
  Country: US (occurrence: US)
  Receive Date: 20230907
  Receipt Date: 20240115
  Transmission Date: 20240410
  Serious: No
  Sender: FDA-Public Use
  Company Number: US-OPELLA-2023OHG004866

PATIENT
  Age: 75 Year
  Sex: Female

DRUGS (3)
  1. ICY HOT ORIGINAL FOAM [Suspect]
     Active Substance: MENTHOL
     Indication: Arthralgia
     Dosage: AT BEDTIME
     Route: 061
  2. LIDOCAINE [Suspect]
     Active Substance: LIDOCAINE
     Indication: Product used for unknown indication
  3. SILVER SULFADIAZINE [Concomitant]
     Active Substance: SILVER SULFADIAZINE
     Indication: Thermal burn
     Dates: start: 20230508

REACTIONS (2)
  - Blister rupture [Recovering/Resolving]
  - Burns second degree [Unknown]

NARRATIVE: CASE EVENT DATE: 20230508
